FAERS Safety Report 9714437 (Version 2)
Quarter: 2013Q4

REPORT INFORMATION
  Report Type: Spontaneous
  Country: PE (occurrence: PE)
  Receive Date: 20131126
  Receipt Date: 20131203
  Transmission Date: 20140711
  Serious: Yes (Other)
  Sender: FDA-Public Use
  Company Number: PE-PFIZER INC-2013337300

PATIENT
  Age: 55 Year
  Sex: Female

DRUGS (6)
  1. LYRICA [Suspect]
     Indication: FIBROMYALGIA
     Dosage: 75 MG, 1X/DAY
     Route: 048
     Dates: start: 201309, end: 201311
  2. LYRICA [Suspect]
     Indication: SPINAL PAIN
  3. OSTICAL [Concomitant]
     Dosage: UNK
     Route: 048
  4. ASPIRINE [Concomitant]
     Dosage: UNK
     Route: 048
     Dates: end: 201310
  5. MELOXICAM [Concomitant]
     Dosage: UNK
     Route: 048
     Dates: end: 201310
  6. ENALAPRIL [Concomitant]
     Indication: HYPERTENSION
     Dosage: UNK
     Route: 048

REACTIONS (2)
  - Spinal cord herniation [Recovered/Resolved]
  - Dyspnoea [Recovered/Resolved]
